FAERS Safety Report 25853744 (Version 1)
Quarter: 2025Q3

REPORT INFORMATION
  Report Type: Spontaneous
  Country: US (occurrence: None)
  Receive Date: 20250926
  Receipt Date: 20250926
  Transmission Date: 20251020
  Serious: No
  Sender: FDA-CTU
  Company Number: None

PATIENT
  Sex: Female

DRUGS (3)
  1. CAPECITABINE [Suspect]
     Active Substance: CAPECITABINE
     Indication: Rectal cancer
     Dosage: 1000 MG TWICE A DAY ORAL ?
     Route: 048
     Dates: start: 20240502
  2. SPIRONOLACTONE [Concomitant]
     Active Substance: SPIRONOLACTONE
  3. BUMEX [Concomitant]
     Active Substance: BUMETANIDE

REACTIONS (2)
  - Oedema peripheral [None]
  - Therapy change [None]
